FAERS Safety Report 9747477 (Version 3)
Quarter: 2013Q4

REPORT INFORMATION
  Report Type: Report from Study
  Country: IT (occurrence: IT)
  Receive Date: 20131212
  Receipt Date: 20131221
  Transmission Date: 20140711
  Serious: Yes (Death)
  Sender: FDA-Public Use
  Company Number: IT-ROCHE-1315810

PATIENT
  Age: 54 Year
  Sex: Male

DRUGS (3)
  1. PEG-INTERFERON ALFA 2A [Suspect]
     Indication: CHRONIC HEPATITIS C
     Route: 065
     Dates: start: 20120423, end: 20120927
  2. RIBAVIRIN [Suspect]
     Indication: CHRONIC HEPATITIS C
     Route: 065
     Dates: start: 20120423, end: 20120927
  3. HEPARIN LMW [Concomitant]
     Indication: HYPERCOAGULATION

REACTIONS (2)
  - Hepatic failure [Fatal]
  - Craniocerebral injury [Fatal]
